FAERS Safety Report 9444227 (Version 2)
Quarter: 2013Q3

REPORT INFORMATION
  Report Type: Spontaneous
  Country: BE (occurrence: BE)
  Receive Date: 20130807
  Receipt Date: 20130830
  Transmission Date: 20140515
  Serious: Yes (Hospitalization)
  Sender: FDA-Public Use
  Company Number: PHHY2013BE082654

PATIENT
  Age: 44 Year
  Sex: Female

DRUGS (4)
  1. GILENYA [Suspect]
     Route: 048
  2. CIPRAMIL [Concomitant]
  3. XANAX [Concomitant]
  4. ELEONOR [Concomitant]
     Indication: ORAL CONTRACEPTION

REACTIONS (1)
  - Epilepsy [Recovered/Resolved]
